FAERS Safety Report 20617835 (Version 1)
Quarter: 2022Q1

REPORT INFORMATION
  Report Type: Spontaneous
  Country: CN (occurrence: CN)
  Receive Date: 20220321
  Receipt Date: 20220321
  Transmission Date: 20220423
  Serious: Yes (Hospitalization)
  Sender: FDA-Public Use
  Company Number: CN-BAXTER-2022BAX006068

PATIENT
  Age: 73 Year
  Sex: Female
  Weight: 60 kg

DRUGS (4)
  1. CYCLOPHOSPHAMIDE [Suspect]
     Active Substance: CYCLOPHOSPHAMIDE
     Indication: Breast cancer female
     Dosage: 0.9% SODIUM CHLORIDE (100 ML) + CYCLOPHOSPHAMIDE (900 MG), ST, D1, 1ST CYCLE OF CHEMOTHERAPY
     Route: 041
     Dates: start: 20220303, end: 20220303
  2. SODIUM CHLORIDE [Suspect]
     Active Substance: SODIUM CHLORIDE
     Indication: Medication dilution
     Dosage: 0.9% SODIUM CHLORIDE (100 ML) + CYCLOPHOSPHAMIDE (900 MG), ST, D1, 1ST CYCLE OF CHEMOTHERAPY
     Route: 041
     Dates: start: 20220303, end: 20220303
  3. DEXTROSE [Suspect]
     Active Substance: DEXTROSE
     Indication: Medication dilution
     Dosage: 5% GLUCOSE (100 ML) + PIRARUBICIN HYDROCHLORIDE (90 MG), ST, D1, 1ST CYCLE OF CHEMOTHERAPY
     Route: 041
     Dates: start: 20220303, end: 20220303
  4. PIRARUBICIN HYDROCHLORIDE [Suspect]
     Active Substance: PIRARUBICIN HYDROCHLORIDE
     Indication: Breast cancer female
     Dosage: 5% GLUCOSE (100 ML) + PIRARUBICIN HYDROCHLORIDE (90 MG), ST, D1, 1ST CYCLE OF CHEMOTHERAPY
     Route: 041
     Dates: start: 20220303, end: 20220303

REACTIONS (1)
  - Myelosuppression [Recovering/Resolving]

NARRATIVE: CASE EVENT DATE: 20220310
